FAERS Safety Report 9437849 (Version 1)
Quarter: 2013Q3

REPORT INFORMATION
  Report Type: Report from Study
  Country: CA (occurrence: CA)
  Receive Date: 20130802
  Receipt Date: 20130802
  Transmission Date: 20140515
  Serious: Yes (Hospitalization, Other)
  Sender: FDA-Public Use
  Company Number: CA-JNJFOC-20130716993

PATIENT
  Age: 49 Year
  Sex: Male
  Weight: 77 kg

DRUGS (1)
  1. REMICADE [Suspect]
     Indication: PSORIATIC ARTHROPATHY
     Route: 042
     Dates: start: 2005

REACTIONS (7)
  - Stent placement [Unknown]
  - Dyspnoea [Unknown]
  - Arthralgia [Unknown]
  - Back pain [Recovered/Resolved]
  - Pain [Unknown]
  - Local swelling [Unknown]
  - Dyspepsia [Unknown]
